FAERS Safety Report 13864445 (Version 4)
Quarter: 2020Q4

REPORT INFORMATION
  Report Type: Spontaneous
  Country: US (occurrence: US)
  Receive Date: 20170814
  Receipt Date: 20201111
  Transmission Date: 20210113
  Serious: Yes (Hospitalization, Other)
  Sender: FDA-Public Use
  Company Number: US-SA-2017SA148661

PATIENT

DRUGS (2)
  1. CEREZYME [Suspect]
     Active Substance: IMIGLUCERASE
     Indication: GAUCHER^S DISEASE
     Dosage: 3600 DF,QOW
     Route: 041
     Dates: start: 20090127
  2. CEREZYME [Suspect]
     Active Substance: IMIGLUCERASE
     Dosage: 3600 DF,QOW
     Route: 041
     Dates: start: 20100316

REACTIONS (6)
  - Gait disturbance [Unknown]
  - Head injury [Unknown]
  - Vascular access site occlusion [Unknown]
  - Hypoaesthesia [Recovering/Resolving]
  - Loss of consciousness [Unknown]
  - Blood cholesterol increased [Unknown]

NARRATIVE: CASE EVENT DATE: 20170630
